FAERS Safety Report 20245947 (Version 1)
Quarter: 2021Q4

REPORT INFORMATION
  Report Type: Spontaneous
  Country: CN (occurrence: CN)
  Receive Date: 20211229
  Receipt Date: 20211229
  Transmission Date: 20220303
  Serious: Yes (Hospitalization, Disabling)
  Sender: FDA-Public Use
  Company Number: CN-PFIZER INC-202101815115

PATIENT
  Age: 55 Year
  Sex: Male
  Weight: 43 kg

DRUGS (6)
  1. LINEZOLID [Suspect]
     Active Substance: LINEZOLID
     Indication: Pulmonary tuberculosis
     Dosage: 0.6 G, 1X/DAY
     Route: 048
     Dates: start: 20200830, end: 20210601
  2. PROTIONAMIDE [Suspect]
     Active Substance: PROTIONAMIDE
     Indication: Pulmonary tuberculosis
     Dosage: 0.5 G, 1X/DAY
     Route: 048
     Dates: start: 20200830, end: 20210601
  3. CLOFAZIMINE [Suspect]
     Active Substance: CLOFAZIMINE
     Indication: Pulmonary tuberculosis
     Dosage: 100 MG, 1X/DAY
     Route: 048
     Dates: start: 20200830, end: 20201030
  4. CYCLOSERINE [Suspect]
     Active Substance: CYCLOSERINE
     Indication: Pulmonary tuberculosis
     Dosage: 0.25 G, 2X/DAY
     Route: 048
     Dates: start: 20200830, end: 20210601
  5. ETHAMBUTOL HYDROCHLORIDE [Suspect]
     Active Substance: ETHAMBUTOL HYDROCHLORIDE
     Indication: Pulmonary tuberculosis
     Dosage: 0.75 G, 1X/DAY
     Route: 048
     Dates: start: 20200830, end: 20210601
  6. MOXIFLOXACIN HYDROCHLORIDE [Suspect]
     Active Substance: MOXIFLOXACIN HYDROCHLORIDE
     Indication: Pulmonary tuberculosis
     Dosage: 0.4 G, 1X/DAY
     Route: 048
     Dates: start: 20200830, end: 20210601

REACTIONS (8)
  - Hepatic function abnormal [Unknown]
  - Coagulation time prolonged [Unknown]
  - Dyspnoea [Unknown]
  - Chest pain [Unknown]
  - Erythema [Unknown]
  - Anaemia [Unknown]
  - Off label use [Unknown]
  - Off label use [Unknown]

NARRATIVE: CASE EVENT DATE: 20211201
